FAERS Safety Report 17811638 (Version 1)
Quarter: 2020Q2

REPORT INFORMATION
  Report Type: Spontaneous
  Country: IT (occurrence: IT)
  Receive Date: 20200521
  Receipt Date: 20200521
  Transmission Date: 20200714
  Serious: Yes (Hospitalization)
  Sender: FDA-Public Use
  Company Number: IT-ACCORD-182560

PATIENT
  Age: 37 Year
  Sex: Female

DRUGS (3)
  1. QUETIAPINE. [Suspect]
     Active Substance: QUETIAPINE
     Route: 048
  2. LITHIUM. [Suspect]
     Active Substance: LITHIUM
     Dosage: STRENGTH: 300 MG
     Route: 048
  3. XANAX [Suspect]
     Active Substance: ALPRAZOLAM
     Route: 048

REACTIONS (5)
  - Vomiting [Recovered/Resolved]
  - Sopor [Recovered/Resolved]
  - Intentional self-injury [Unknown]
  - Drug abuse [Unknown]
  - Poverty of speech [Recovered/Resolved]

NARRATIVE: CASE EVENT DATE: 20200424
